FAERS Safety Report 9369393 (Version 26)
Quarter: 2016Q4

REPORT INFORMATION
  Report Type: Report from Study
  Country: CA (occurrence: CA)
  Receive Date: 20130626
  Receipt Date: 20161222
  Transmission Date: 20170207
  Serious: Yes (Life-Threatening, Hospitalization, Other)
  Sender: FDA-Public Use
  Company Number: CA-ROCHE-1123906

PATIENT
  Age: 64 Year
  Sex: Female
  Weight: 94 kg

DRUGS (17)
  1. PREDNISONE. [Concomitant]
     Active Substance: PREDNISONE
  2. ACTEMRA [Suspect]
     Active Substance: TOCILIZUMAB
     Route: 042
     Dates: start: 20140902, end: 20141128
  3. SYNTHROID [Concomitant]
     Active Substance: LEVOTHYROXINE SODIUM
     Route: 065
  4. RAMIPRIL. [Concomitant]
     Active Substance: RAMIPRIL
     Route: 065
  5. ACTEMRA [Suspect]
     Active Substance: TOCILIZUMAB
     Route: 042
     Dates: start: 20121130
  6. ACTEMRA [Suspect]
     Active Substance: TOCILIZUMAB
     Route: 042
     Dates: start: 20140514
  7. AMILORIDE [Concomitant]
     Active Substance: AMILORIDE
     Route: 065
  8. ZENHALE [Concomitant]
     Active Substance: FORMOTEROL FUMARATE\MOMETASONE FUROATE
  9. ESTROGEL [Concomitant]
     Active Substance: ESTRADIOL
     Route: 065
  10. ACTEMRA [Suspect]
     Active Substance: TOCILIZUMAB
     Indication: RHEUMATOID ARTHRITIS
     Route: 042
     Dates: start: 20120510
  11. ALVESCO [Concomitant]
     Active Substance: CICLESONIDE
  12. ACTEMRA [Suspect]
     Active Substance: TOCILIZUMAB
     Route: 058
     Dates: start: 201510
  13. DEXILANT [Concomitant]
     Active Substance: DEXLANSOPRAZOLE
  14. ACTEMRA [Suspect]
     Active Substance: TOCILIZUMAB
     Indication: RHEUMATOID ARTHRITIS
     Route: 058
     Dates: start: 201504
  15. ELAVIL [Concomitant]
     Active Substance: AMITRIPTYLINE HYDROCHLORIDE
  16. PREMARIN [Concomitant]
     Active Substance: ESTROGENS, CONJUGATED
     Route: 065
  17. NEXIUM [Concomitant]
     Active Substance: ESOMEPRAZOLE MAGNESIUM

REACTIONS (40)
  - Drug effect decreased [Unknown]
  - Lung infection [Not Recovered/Not Resolved]
  - Herpes zoster [Not Recovered/Not Resolved]
  - Fatigue [Unknown]
  - Therapy partial responder [Unknown]
  - Sinus pain [Unknown]
  - Infusion site bruising [Recovering/Resolving]
  - Sinus congestion [Unknown]
  - Cough [Not Recovered/Not Resolved]
  - Hot flush [Unknown]
  - Myalgia [Unknown]
  - Intestinal perforation [Unknown]
  - Nausea [Unknown]
  - Vomiting [Recovered/Resolved]
  - Dehydration [Not Recovered/Not Resolved]
  - Nausea [Recovered/Resolved]
  - Joint swelling [Not Recovered/Not Resolved]
  - Malaise [Not Recovered/Not Resolved]
  - Asthenia [Not Recovered/Not Resolved]
  - Upper-airway cough syndrome [Not Recovered/Not Resolved]
  - Abdominal pain [Unknown]
  - Joint stiffness [Recovering/Resolving]
  - White blood cell count decreased [Recovered/Resolved]
  - Hypotension [Recovered/Resolved]
  - Chest pain [Recovered/Resolved]
  - Diarrhoea [Unknown]
  - Food poisoning [Recovering/Resolving]
  - Infusion related reaction [Unknown]
  - Pharyngitis streptococcal [Not Recovered/Not Resolved]
  - Weight increased [Not Recovered/Not Resolved]
  - Blood pressure increased [Unknown]
  - Infection [Unknown]
  - Drug ineffective [Unknown]
  - Appendicitis perforated [Unknown]
  - Hiatus hernia [Not Recovered/Not Resolved]
  - Dizziness [Recovered/Resolved]
  - Paraesthesia [Recovered/Resolved]
  - Arthralgia [Recovering/Resolving]
  - Weight increased [Unknown]
  - Chills [Unknown]

NARRATIVE: CASE EVENT DATE: 201207
